FAERS Safety Report 20908616 (Version 4)
Quarter: 2024Q2

REPORT INFORMATION
  Report Type: Spontaneous
  Country: DE (occurrence: DE)
  Receive Date: 20220603
  Receipt Date: 20240524
  Transmission Date: 20240716
  Serious: Yes (Death, Hospitalization, Other)
  Sender: FDA-Public Use
  Company Number: DE-CELLTRION INC.-2021DE017955

PATIENT

DRUGS (3)
  1. RITUXIMAB [Suspect]
     Active Substance: RITUXIMAB
     Indication: Rheumatoid arthritis
     Dosage: 1000 MILLIGRAM (MOST RECENT DOSE OF RITUXIMAB RECEIVED ON 10/JUN/2021.)
     Route: 065
     Dates: start: 20210610
  2. METHOTREXATE SODIUM [Suspect]
     Active Substance: METHOTREXATE SODIUM
     Indication: Rheumatoid arthritis
     Dosage: UNK
     Route: 065
  3. LEFLUNOMIDE [Suspect]
     Active Substance: LEFLUNOMIDE
     Indication: Rheumatoid arthritis
     Dosage: 20 MG, 1X/DAY
     Route: 065
     Dates: end: 202107

REACTIONS (5)
  - Cardiac procedure complication [Fatal]
  - Septic shock [Fatal]
  - Endocarditis [Fatal]
  - Endocarditis [Recovered/Resolved]
  - Endocarditis bacterial [Recovered/Resolved]

NARRATIVE: CASE EVENT DATE: 20210701
